FAERS Safety Report 6436503-8 (Version None)
Quarter: 2009Q4

REPORT INFORMATION
  Report Type: 
  Country: None (occurrence: None)
  Receive Date: 20091110
  Receipt Date: 20080307
  Transmission Date: 20100525
  Serious: No
  Sender: FDA-Public Use
  Company Number: AEUSA200800057

PATIENT
  Age: 39 Year
  Sex: Female
  Weight: 68.4932 kg

DRUGS (8)
  1. IMMUNE GLOBULIN (HUMAN) [Suspect]
     Indication: LICHEN MYXOEDEMATOSUS
     Dosage: 2 G/KG; Q8W; IV
     Route: 042
     Dates: start: 20020701, end: 20080411
  2. OXYCONTIN [Concomitant]
  3. OXYCODONE HCL [Concomitant]
  4. LASIX [Concomitant]
  5. NORVASC [Concomitant]
  6. PREMPRO [Concomitant]
  7. ACTONEL [Concomitant]
  8. COLACE [Concomitant]

REACTIONS (6)
  - ARTERIOSCLEROSIS [None]
  - INFUSION RELATED REACTION [None]
  - RASH PAPULAR [None]
  - RASH PRURITIC [None]
  - RENAL ARTERY STENOSIS [None]
  - RENAL FAILURE ACUTE [None]
